FAERS Safety Report 9324494 (Version 1)
Quarter: 2013Q2

REPORT INFORMATION
  Report Type: Spontaneous
  Country: US (occurrence: None)
  Receive Date: 20130529
  Receipt Date: 20130529
  Transmission Date: 20140414
  Serious: Yes (Other)
  Sender: FDA-Public Use
  Company Number: 2013CT000040

PATIENT
  Sex: Female

DRUGS (2)
  1. KORLYM [Suspect]
     Indication: CUSHING^S SYNDROME
     Dates: start: 20130413, end: 2013
  2. VITAMIN B INJECTION [Concomitant]

REACTIONS (4)
  - Convulsion [None]
  - Malaise [None]
  - Headache [None]
  - Diarrhoea [None]
